FAERS Safety Report 17630497 (Version 1)
Quarter: 2020Q2

REPORT INFORMATION
  Report Type: Spontaneous
  Country: US (occurrence: US)
  Receive Date: 20200405
  Receipt Date: 20200405
  Transmission Date: 20200713
  Serious: Yes (Death, Hospitalization)
  Sender: FDA-Public Use
  Company Number: None

PATIENT
  Age: 80 Year
  Sex: Male
  Weight: 103.4 kg

DRUGS (8)
  1. AMIODARONE [Suspect]
     Active Substance: AMIODARONE
     Indication: ATRIAL FIBRILLATION
     Route: 048
     Dates: start: 20200401
  2. DIGOXIN. [Concomitant]
     Active Substance: DIGOXIN
     Dates: start: 20200228
  3. FUROSEMIDE. [Concomitant]
     Active Substance: FUROSEMIDE
     Dates: start: 20191222
  4. ALENDRONATE [Suspect]
     Active Substance: ALENDRONATE SODIUM
     Indication: OSTEOPOROSIS
     Dosage: ?          OTHER FREQUENCY:WEEKLY;?
     Route: 048
     Dates: start: 20191201
  5. AMIODARONE [Concomitant]
     Active Substance: AMIODARONE
     Dates: start: 20200401
  6. DILTIAZEM. [Concomitant]
     Active Substance: DILTIAZEM
     Dates: start: 20200228
  7. ALENDRONATE [Concomitant]
     Active Substance: ALENDRONATE SODIUM
     Dates: start: 20191201
  8. PRADAXA [Concomitant]
     Active Substance: DABIGATRAN ETEXILATE MESYLATE
     Dates: start: 20191216

REACTIONS (4)
  - Atrial fibrillation [None]
  - Cardiac arrest [None]
  - Coronavirus infection [None]
  - Pneumonia [None]

NARRATIVE: CASE EVENT DATE: 20191216
